FAERS Safety Report 5218466-6 (Version None)
Quarter: 2007Q1

REPORT INFORMATION
  Report Type: 
  Country: None (occurrence: None)
  Receive Date: 20061201
  Receipt Date: 20060227
  Transmission Date: 20070707
  Serious: Yes (Other)
  Sender: FDA-Public Use
  Company Number: SUS1-2006-00246

PATIENT
  Age: 6 Year
  Sex: Male
  Weight: 23.8 kg

DRUGS (1)
  1. ADDERALL XR 10 [Suspect]
     Indication: ATTENTION DEFICIT/HYPERACTIVITY DISORDER
     Dosage: 15 MG, 1X/DAY:QD
     Dates: end: 20060127

REACTIONS (1)
  - PSYCHOTIC DISORDER [None]
